FAERS Safety Report 8439360-3 (Version None)
Quarter: 2012Q2

REPORT INFORMATION
  Report Type: 
  Country: None (occurrence: None)
  Receive Date: 20120615
  Receipt Date: 20120612
  Transmission Date: 20120825
  Serious: Yes (Life-Threatening, Other)
  Sender: FDA-Public Use
  Company Number: PHHY2012BR050805

PATIENT
  Sex: Female

DRUGS (1)
  1. DIOVAN AMLO FIX [Suspect]
     Dosage: 1 DF (320/5 MG), UNK

REACTIONS (5)
  - ACCIDENT [None]
  - MEMORY IMPAIRMENT [None]
  - COMA [None]
  - LOWER LIMB FRACTURE [None]
  - HEAD INJURY [None]
